FAERS Safety Report 23416223 (Version 1)
Quarter: 2024Q1

REPORT INFORMATION
  Report Type: Spontaneous
  Country: US (occurrence: None)
  Receive Date: 20240117
  Receipt Date: 20240117
  Transmission Date: 20240409
  Serious: Yes (Other)
  Sender: FDA-Public Use
  Company Number: None

PATIENT
  Age: 33 Year
  Sex: Male
  Weight: 126 kg

DRUGS (3)
  1. CELEBREX [Suspect]
     Active Substance: CELECOXIB
     Indication: Anxiety
     Dosage: OTHER QUANTITY : 30 CAPSULE(S);?FREQUENCY : DAILY;?
     Route: 048
  2. CELEXA [Suspect]
     Active Substance: CITALOPRAM HYDROBROMIDE
  3. VYVANSE [Concomitant]
     Active Substance: LISDEXAMFETAMINE DIMESYLATE

REACTIONS (4)
  - Urticaria [None]
  - Hypertension [None]
  - Anxiety [None]
  - Product substitution issue [None]

NARRATIVE: CASE EVENT DATE: 20231123
